FAERS Safety Report 6234164-4 (Version None)
Quarter: 2009Q2

REPORT INFORMATION
  Report Type: 
  Country: None (occurrence: None)
  Receive Date: 20090611
  Receipt Date: 20080409
  Transmission Date: 20091009
  Serious: Yes (Other)
  Sender: FDA-Public Use
  Company Number: WAES 07O7USA02668

PATIENT
  Age: 52 Year
  Sex: Female

DRUGS (5)
  1. FOSAMAX PLUS D [Suspect]
     Indication: OSTEOPOROSIS PROPHYLAXIS
     Dosage: 70 MG/2800 IU/PO
     Route: 048
     Dates: start: 20050301, end: 20060401
  2. FOSAMAX [Suspect]
     Dosage: 70 MG/PO
     Route: 048
     Dates: start: 20050321
  3. CRESTOR [Concomitant]
  4. UNITHROID [Concomitant]
  5. HYDROCHLOROTHIAZIDE [Concomitant]

REACTIONS (4)
  - CARDIAC MURMUR [None]
  - HYPERTENSION [None]
  - OSTEONECROSIS [None]
  - TEMPOROMANDIBULAR JOINT SYNDROME [None]
